FAERS Safety Report 18466951 (Version 2)
Quarter: 2020Q4

REPORT INFORMATION
  Report Type: Spontaneous
  Country: HU (occurrence: HU)
  Receive Date: 20201105
  Receipt Date: 20201106
  Transmission Date: 20210114
  Serious: Yes (Death, Life-Threatening, Hospitalization, Other)
  Sender: FDA-Public Use
  Company Number: HU-MYLANLABS-2019M1117262

PATIENT
  Age: 78 Year
  Sex: Male

DRUGS (46)
  1. AVIBACTAM SODIUM W/CEFTAZIDIME PENTAHYDRATE [Suspect]
     Active Substance: AVIBACTAM SODIUM\CEFTAZIDIME
     Indication: SEPSIS
     Dosage: 2.5 MILLIGRAM
     Route: 042
     Dates: start: 20180707, end: 20180713
  2. AVIBACTAM SODIUM W/CEFTAZIDIME PENTAHYDRATE [Suspect]
     Active Substance: AVIBACTAM SODIUM\CEFTAZIDIME
     Dosage: 2.5 G, TID
     Route: 042
     Dates: start: 20180707, end: 20180713
  3. GENTAMICIN. [Suspect]
     Active Substance: GENTAMICIN
     Indication: ENTEROBACTER INFECTION
     Dosage: (FOR 6 DAYS WITH CEFTAZIDIME)
     Route: 042
  4. MEROPENEM. [Suspect]
     Active Substance: MEROPENEM
     Indication: PNEUMONIA KLEBSIELLA
     Dosage: 2 GRAM, QD, 1 G, 2X/DAY
     Route: 042
  5. PIPERACILLIN/TAZOBACTAM [Suspect]
     Active Substance: PIPERACILLIN SODIUM\TAZOBACTAM SODIUM
     Dosage: 18 GRAM, QD, 4.5 G, 4X/DAY
     Route: 042
  6. METRONIDAZOLE. [Suspect]
     Active Substance: METRONIDAZOLE
     Indication: CLOSTRIDIUM DIFFICILE INFECTION
     Dosage: UNK
     Route: 042
  7. CILASTATIN SODIUM W/IMIPENEM [Suspect]
     Active Substance: CILASTATIN SODIUM\IMIPENEM
     Indication: ENTEROCOCCAL INFECTION
     Dosage: 1000 MILLIGRAM, QD, 500 MG, 2X/DAY
     Route: 042
  8. VANCOMYCIN [Suspect]
     Active Substance: VANCOMYCIN
     Indication: CLOSTRIDIUM DIFFICILE INFECTION
     Dosage: UNK
     Route: 048
  9. VANCOMYCIN [Suspect]
     Active Substance: VANCOMYCIN
     Dosage: 500 MILLIGRAM, QD, 125 MG, 4X/DAY (125 MG, QID)
     Route: 048
  10. FOSFOMYCIN [Suspect]
     Active Substance: FOSFOMYCIN
     Dosage: 3 GRAM, QD, 3 G, 1X/DAY
     Route: 048
  11. METRONIDAZOLE. [Suspect]
     Active Substance: METRONIDAZOLE
     Dosage: 300 MILLILITER, QD, 100 ML, 3X/DAY
     Route: 042
  12. FIDAXOMICIN [Suspect]
     Active Substance: FIDAXOMICIN
     Indication: CLOSTRIDIUM DIFFICILE INFECTION
     Dosage: UNK (FOR 10 DAYS)
  13. AMOXICILLIN/CLAVULANIC ACID [Suspect]
     Active Substance: AMOXICILLIN\CLAVULANIC ACID
     Indication: PROPHYLAXIS
     Dosage: 3.6 GRAM, QD, 1.2 G, TID
     Route: 042
  14. CEFUROXIM                          /00454601/ [Suspect]
     Active Substance: CEFUROXIME
     Indication: BACTERIAL INFECTION
  15. CILASTATIN SODIUM W/IMIPENEM [Suspect]
     Active Substance: CILASTATIN SODIUM\IMIPENEM
     Indication: PATHOGEN RESISTANCE
     Dosage: UNK (FOR 5 DAYS)
  16. CILASTATIN SODIUM W/IMIPENEM [Suspect]
     Active Substance: CILASTATIN SODIUM\IMIPENEM
     Dosage: 2000 MILLIGRAM, QD, 500 MG, 4X/DAY
     Route: 042
  17. FIDAXOMICIN [Suspect]
     Active Substance: FIDAXOMICIN
     Dosage: 400 MILLIGRAM, QD, 200 MG, 2X/DAY
     Route: 065
  18. AVIBACTAM SODIUM W/CEFTAZIDIME PENTAHYDRATE [Suspect]
     Active Substance: AVIBACTAM SODIUM\CEFTAZIDIME
     Indication: PNEUMONIA KLEBSIELLA
     Dosage: UNK (FOR 7 DAYS)
     Route: 051
  19. AMOXICILLIN TRIHYDRATE W/CLAVULANIC ACID [Suspect]
     Active Substance: AMOXICILLIN\CLAVULANIC ACID
     Indication: INFLAMMATION
  20. AMOXICILLIN/CLAVULANIC ACID [Suspect]
     Active Substance: AMOXICILLIN\CLAVULANIC ACID
     Indication: INFLAMMATION
  21. CEFUROXIM                          /00454601/ [Suspect]
     Active Substance: CEFUROXIME
     Indication: ENTEROBACTER INFECTION
     Dosage: UNK (FOR 6 DAYS)
     Route: 042
  22. SULFAMETHOXAZOLE AND TRIMETHOPRIM [Suspect]
     Active Substance: SULFAMETHOXAZOLE\TRIMETHOPRIM
     Indication: CITROBACTER INFECTION
     Dosage: UNK
  23. SULFAMETHOXAZOLE AND TRIMETHOPRIM [Suspect]
     Active Substance: SULFAMETHOXAZOLE\TRIMETHOPRIM
     Dosage: UNK, 2,QD, 400/80 MG, 2X/DAY
     Route: 048
  24. GENTAMICIN. [Suspect]
     Active Substance: GENTAMICIN
     Indication: BACTERIAL INFECTION
     Dosage: UNK
     Route: 065
  25. GENTAMICIN. [Suspect]
     Active Substance: GENTAMICIN
     Indication: ENTEROBACTER TEST POSITIVE
  26. CEFTAZIDIME MYLAN [Suspect]
     Active Substance: CEFTAZIDIME
     Indication: ENTEROBACTER INFECTION
     Dosage: UNK (FOR 6 DAYS WITH GENTAMICIN)
     Route: 065
  27. CEFTAZIDIME MYLAN [Suspect]
     Active Substance: CEFTAZIDIME
     Indication: ENTEROBACTER TEST POSITIVE
     Dosage: 6 GRAM, QD, GRAM (2 G, TID)
     Route: 042
  28. CEFUROXIM                          /00454601/ [Suspect]
     Active Substance: CEFUROXIME
     Indication: INFLAMMATION
     Dosage: 4.5 GRAM, QD, 1.5 G, 3X/DAY
     Route: 042
  29. METRONIDAZOLE. [Suspect]
     Active Substance: METRONIDAZOLE
     Indication: INFLAMMATION
     Dosage: UNK
     Route: 042
  30. ZAVICEFTA [Suspect]
     Active Substance: AVIBACTAM SODIUM\CEFTAZIDIME
     Indication: PNEUMONIA KLEBSIELLA
     Dosage: 2.5 G, UNK
     Route: 042
     Dates: start: 20180707, end: 20180713
  31. ZAVICEFTA [Suspect]
     Active Substance: AVIBACTAM SODIUM\CEFTAZIDIME
     Indication: ABDOMINAL INFECTION
  32. FOSFOMYCIN [Suspect]
     Active Substance: FOSFOMYCIN
     Indication: PNEUMONIA KLEBSIELLA
     Dosage: UNK
  33. GENTAMICIN. [Suspect]
     Active Substance: GENTAMICIN
     Indication: PSEUDOMONAS INFECTION
     Dosage: 160 MILLIGRAM, QD, 160 MG, 1X/DAY (WITH CEFTAZIDIME)
     Route: 042
  34. PIPERACILLIN/TAZOBACTAM [Suspect]
     Active Substance: PIPERACILLIN SODIUM\TAZOBACTAM SODIUM
     Indication: ANTIBIOTIC THERAPY
     Dosage: UNK (TAKEN FOR 6 DAYS)
     Route: 042
  35. CEFTAZIDIME MYLAN [Suspect]
     Active Substance: CEFTAZIDIME
     Indication: BACTERIAL INFECTION
  36. METRONIDAZOLE. [Suspect]
     Active Substance: METRONIDAZOLE
     Indication: PROPHYLAXIS
     Dosage: UNK
     Route: 042
  37. CILASTATIN SODIUM W/IMIPENEM [Suspect]
     Active Substance: CILASTATIN SODIUM\IMIPENEM
     Indication: RENAL IMPAIRMENT
     Dosage: UNK (FOR 8 DAYS)
  38. ZAVICEFTA [Suspect]
     Active Substance: AVIBACTAM SODIUM\CEFTAZIDIME
     Indication: SEPSIS
     Dosage: 7.5 GRAM, QD, 2.5 G, 3X/DAY
     Route: 042
     Dates: start: 20180707, end: 20180713
  39. ZAVICEFTA [Suspect]
     Active Substance: AVIBACTAM SODIUM\CEFTAZIDIME
     Indication: KLEBSIELLA INFECTION
     Dosage: UNK
     Route: 042
  40. AMOXICILLIN TRIHYDRATE W/CLAVULANIC ACID [Suspect]
     Active Substance: AMOXICILLIN\CLAVULANIC ACID
     Indication: PROPHYLAXIS
     Dosage: 3.6 GRAM, QD, 1.2 G, 3X/DAY
     Route: 042
  41. BETADIN [Concomitant]
     Active Substance: POVIDONE-IODINE
     Indication: PRODUCT USED FOR UNKNOWN INDICATION
     Dosage: UNK
  42. ASCORBIC ACID. [Concomitant]
     Active Substance: ASCORBIC ACID
     Dosage: UNK
  43. METHENAMINE [Concomitant]
     Active Substance: METHENAMINE
     Dosage: UNK
  44. CEFTAZIDIME MYLAN [Suspect]
     Active Substance: CEFTAZIDIME
     Indication: PSEUDOMONAS INFECTION
     Dosage: UNK
     Route: 042
  45. CEFUROXIM                          /00454601/ [Suspect]
     Active Substance: CEFUROXIME
     Indication: ESCHERICHIA INFECTION
     Dosage: UNK
     Route: 042
  46. MEROPENEM. [Suspect]
     Active Substance: MEROPENEM
     Indication: KLEBSIELLA INFECTION
     Dosage: UNK (FOR 3 DAYS)
     Route: 051

REACTIONS (17)
  - Drug resistance [Unknown]
  - Clostridium difficile infection [Not Recovered/Not Resolved]
  - Pathogen resistance [Fatal]
  - Septic shock [Fatal]
  - Respiratory failure [Unknown]
  - Diarrhoea [Unknown]
  - Hypoxia [Unknown]
  - Anaemia [Unknown]
  - Sepsis [Fatal]
  - Chills [Unknown]
  - Chest pain [Unknown]
  - Gastroenteritis [Unknown]
  - Dyspnoea [Unknown]
  - Melaena [Unknown]
  - Pyrexia [Unknown]
  - Malaise [Unknown]
  - Product use in unapproved indication [Unknown]

NARRATIVE: CASE EVENT DATE: 20180718
